FAERS Safety Report 8769066 (Version 2)
Quarter: 2012Q4

REPORT INFORMATION
  Report Type: 
  Country: IT (occurrence: IT)
  Receive Date: 20120905
  Receipt Date: 20121015
  Transmission Date: 20130627
  Serious: Yes (Hospitalization)
  Sender: FDA-Public Use
  Company Number: IT-BRISTOL-MYERS SQUIBB COMPANY-16904773

PATIENT
  Age: 70 Year
  Sex: Male

DRUGS (2)
  1. KARVEZIDE TABS [Suspect]
     Indication: HYPERTENSION
     Dosage: 1df=1 dosage unit
     Route: 048
     Dates: start: 20120217, end: 20120818
  2. GLUCOPHAGE TABS 500 MG [Suspect]
     Indication: TYPE 2 DIABETES MELLITUS
     Dosage: 1df=2 dosage units
     Route: 048
     Dates: start: 20120217, end: 20120818

REACTIONS (2)
  - Hypokalaemia [Recovering/Resolving]
  - Blood lactic acid increased [Recovering/Resolving]
